FAERS Safety Report 15269695 (Version 1)
Quarter: 2018Q3

REPORT INFORMATION
  Report Type: Spontaneous
  Country: US (occurrence: US)
  Receive Date: 20180726
  Receipt Date: 20180726
  Transmission Date: 20181010
  Serious: No
  Sender: FDA-Public Use
  Company Number: None

PATIENT
  Age: 56 Year
  Sex: Female

DRUGS (1)
  1. COPAXONE [Suspect]
     Active Substance: GLATIRAMER ACETATE
     Indication: MULTIPLE SCLEROSIS
     Route: 058
     Dates: start: 20170620

REACTIONS (9)
  - Paraesthesia [None]
  - Flushing [None]
  - Nausea [None]
  - Feeling hot [None]
  - Rash [None]
  - Movement disorder [None]
  - Urticaria [None]
  - Back pain [None]
  - Facial pain [None]

NARRATIVE: CASE EVENT DATE: 20171001
